FAERS Safety Report 8186646-6 (Version None)
Quarter: 2012Q1

REPORT INFORMATION
  Report Type: 
  Country: None (occurrence: None)
  Receive Date: 20120306
  Receipt Date: 20120305
  Transmission Date: 20120608
  Serious: Yes (Death, Hospitalization, Other)
  Sender: FDA-Public Use
  Company Number: JP-BAYER-2010-001890

PATIENT
  Age: 61 Year
  Sex: Female
  Weight: 43 kg

DRUGS (64)
  1. UREPEARL [Concomitant]
     Indication: PROPHYLAXIS
     Dosage: UNK
     Route: 061
     Dates: start: 20101101, end: 20110112
  2. TATHION [Concomitant]
     Indication: LIVER DISORDER
     Dosage: 100 MG, QD
     Route: 042
     Dates: start: 20101101
  3. HERBAL PREPARATION [Concomitant]
     Indication: ABDOMINAL DISTENSION
  4. LOXONIN [Concomitant]
     Indication: ANALGESIC THERAPY
     Dosage: 60 MG, QD
     Route: 048
     Dates: start: 20101108, end: 20101108
  5. TPN [Concomitant]
     Indication: NUTRITIONAL SUPPORT
     Dosage: DAILY DOSE 1200 ML
     Dates: start: 20101126
  6. ALBUMIN (HUMAN) [Concomitant]
     Dosage: DAILY DOSE 100 ML
     Route: 042
     Dates: start: 20101101, end: 20101103
  7. NEXAVAR [Suspect]
     Indication: HEPATIC NEOPLASM MALIGNANT
     Dosage: 400 MG, QD
     Route: 048
     Dates: start: 20101102
  8. ADELAVIN [Concomitant]
     Dosage: DAILY DOSE 2 ML
     Route: 042
     Dates: start: 20110112, end: 20110112
  9. ADELAVIN [Concomitant]
     Dosage: DAILY DOSE 1 ML
     Route: 042
     Dates: start: 20110113
  10. GASMOTIN [Concomitant]
     Indication: ABDOMINAL DISCOMFORT
     Dosage: 15 MG, QD
     Route: 048
     Dates: start: 20101106, end: 20110115
  11. LEVOFLOXACIN [Concomitant]
     Indication: INFLAMMATION
     Dosage: 500 MG, QD
     Route: 048
     Dates: start: 20101115, end: 20110206
  12. CEFOCEF [Concomitant]
     Indication: INFLAMMATION
     Dosage: 1 G, QD
     Route: 042
     Dates: start: 20101108, end: 20101114
  13. TATHION [Concomitant]
     Dosage: 200 MG, QD
     Route: 042
     Dates: start: 20110112, end: 20110112
  14. TATHION [Concomitant]
     Dosage: DAILY DOSE 200 MG
     Route: 042
     Dates: start: 20110112, end: 20110112
  15. MIDAZOLAM HCL [Concomitant]
     Indication: PREMEDICATION
     Dosage: 2.5 MG, QD
     Route: 042
     Dates: start: 20101122, end: 20101122
  16. VITAMEDIN [Concomitant]
     Dosage: DAILY DOSE 2 DF
     Route: 042
     Dates: start: 20110112, end: 20110112
  17. SODIUM CHLORIDE [Concomitant]
     Indication: MEDICATION DILUTION
     Dosage: DAILY DOSE 100 ML
     Route: 042
     Dates: start: 20110112
  18. SODIUM CHLORIDE [Concomitant]
     Dosage: 20 ML, UNK
     Route: 042
     Dates: start: 20101122, end: 20101122
  19. ASCORBIC ACID [Concomitant]
     Indication: VITAMIN SUPPLEMENTATION
     Dosage: DAILY DOSE 2000 MG
     Route: 042
     Dates: start: 20110112
  20. HEPARIN SODIUM [Concomitant]
     Dosage: 10 ML, UNK
     Route: 042
     Dates: start: 20101101
  21. HEPARIN [Concomitant]
     Dosage: DAILY DOSE 10 ML
     Route: 042
     Dates: start: 20101101
  22. NEXAVAR [Suspect]
     Dosage: 800 MG, QD
     Dates: start: 20101114
  23. ADELAVIN [Concomitant]
     Indication: LIVER DISORDER
     Dosage: 1 ML, QD
     Route: 042
     Dates: start: 20101101
  24. VEEN D [Concomitant]
     Indication: FLUID REPLACEMENT
     Dosage: 500 ML, QD
     Route: 042
     Dates: start: 20101201, end: 20101201
  25. VEEN D [Concomitant]
     Dosage: 1500 ML, QD
     Route: 042
     Dates: start: 20110112
  26. SWORD [Concomitant]
     Indication: INFLAMMATION
     Dosage: 200 MG, QD
     Route: 048
     Dates: start: 20100101, end: 20101105
  27. BARACLUDE [Concomitant]
     Indication: HEPATITIS B
     Dosage: 0.5 MG, UNK
     Route: 048
     Dates: start: 20101101, end: 20110204
  28. MAGMITT [Concomitant]
     Indication: DISBACTERIOSIS
     Dosage: 990 MG, QD
     Route: 048
     Dates: start: 20101106, end: 20110115
  29. LAXOBERON [Concomitant]
     Indication: CONSTIPATION
     Dosage: 15 GTT, QD
     Route: 048
     Dates: start: 20101127, end: 20110206
  30. NEO-MINOPHAGEN C [Concomitant]
     Indication: PROPHYLAXIS
     Dosage: 40 ML, QD
     Route: 042
     Dates: start: 20101101
  31. HEPARIN SODIUM [Concomitant]
     Dosage: 10 ML, UNK
     Route: 042
     Dates: start: 20110112, end: 20110112
  32. RED BLOOD CELLS, CONCENTRATED [Concomitant]
     Dosage: 4 U, UNK
     Route: 042
     Dates: start: 20101118, end: 20101118
  33. URSO 250 [Concomitant]
     Indication: LIVER DISORDER
     Dosage: 600 MG, QD
     Route: 048
     Dates: start: 20101101, end: 20101215
  34. CEFOCEF [Concomitant]
     Dosage: DAILY DOSE 1 G
     Route: 042
     Dates: start: 20110112
  35. TATHION [Concomitant]
     Dosage: 100 MG, QD
     Route: 042
     Dates: start: 20110113
  36. HERBAL PREPARATION [Concomitant]
     Indication: LIVER DISORDER
     Dosage: 7.5 G, QD
     Route: 048
     Dates: start: 20101101, end: 20101215
  37. VITAMEDIN [Concomitant]
     Indication: VITAMIN SUPPLEMENTATION
     Dosage: 1 DF, QD
     Route: 042
     Dates: start: 20101101
  38. VITAMEDIN [Concomitant]
     Dosage: 2 DF, QD
     Route: 042
     Dates: start: 20110112, end: 20110112
  39. SODIUM CHLORIDE [Concomitant]
     Dosage: 100 ML, UNK
     Route: 042
     Dates: start: 20101108, end: 20101114
  40. INDIGO CARMINE [Concomitant]
     Dosage: 20 MG, UNK
     Route: 042
     Dates: start: 20101122, end: 20101122
  41. SOLDEM 3A [Concomitant]
     Indication: FLUID REPLACEMENT
     Dosage: 200 ML, QD
     Route: 042
     Dates: start: 20101101
  42. LASIX [Concomitant]
     Indication: POLYURIA
     Dosage: 40 MG, QD
     Route: 048
     Dates: start: 20101101, end: 20110206
  43. RABEPRAZOLE SODIUM [Concomitant]
     Indication: GASTRIC ULCER
     Dosage: 20 MG, QD
     Route: 048
     Dates: start: 20101117, end: 20101201
  44. RED BLOOD CELLS, LEUCOCYTE DEPLETED [Concomitant]
     Dosage: DAILY DOSE 4 U
     Route: 042
     Dates: start: 20101118, end: 20101118
  45. NEXAVAR [Suspect]
     Dosage: 400 MG, QD
     Route: 048
     Dates: start: 20101123, end: 20110112
  46. SOLDEM 3A [Concomitant]
     Dosage: DAILY DOSE 200 ML
     Route: 042
     Dates: start: 20110112, end: 20110112
  47. VITAMEDIN [Concomitant]
     Dosage: 1 DF, QD
     Route: 042
     Dates: start: 20110113
  48. NEO-MINOPHAGEN C [Concomitant]
     Dosage: 4 DF, QD
     Route: 042
     Dates: start: 20110113
  49. BUPRENORPHINE HCL [Concomitant]
     Indication: ANALGESIC THERAPY
     Dosage: DAILY DOSE .2 MG
     Route: 054
     Dates: start: 20101203, end: 20101231
  50. JUZENTAIHOTO [Concomitant]
     Dosage: 7.5 G, QD
     Route: 048
     Dates: start: 20101101, end: 20101215
  51. HEPARIN [Concomitant]
     Dosage: DAILY DOSE 10 ML
     Route: 042
     Dates: start: 20110112, end: 20110112
  52. CEFOCEF [Concomitant]
     Dosage: DAILY DOSE 1 G
     Route: 042
     Dates: start: 20110112
  53. DAIO-KANZO-TO [Concomitant]
     Indication: ABDOMINAL DISTENSION
     Dosage: 7.5 G, QD
     Route: 048
     Dates: start: 20101101, end: 20101215
  54. MUCOSTA [Concomitant]
     Indication: GASTRITIS PROPHYLAXIS
     Dosage: 330 MG, QD
     Route: 048
     Dates: start: 20100101, end: 20110206
  55. LOXONIN [Concomitant]
     Dosage: 180 MG, QD
     Route: 048
     Dates: start: 20101112, end: 20101201
  56. FLUMAZENIL [Concomitant]
     Indication: PREMEDICATION
     Dosage: 0.5 MG, QD
     Route: 042
     Dates: start: 20101122, end: 20101122
  57. ALDACTONE [Concomitant]
     Indication: POLYURIA
     Dosage: 50 MG, QD
     Route: 048
     Dates: start: 20101101, end: 20110206
  58. SOLDEM 3A [Concomitant]
     Dosage: DAILY DOSE 200 ML
     Route: 042
     Dates: start: 20110112, end: 20110112
  59. NAPROXEN [Concomitant]
     Indication: TUMOUR ASSOCIATED FEVER
     Dosage: 300 MG, QD
     Route: 048
     Dates: start: 20100101, end: 20110206
  60. PURSENNID [Concomitant]
     Indication: CONSTIPATION
     Dosage: 24 MG, QD
     Route: 048
     Dates: start: 20101106, end: 20101201
  61. NEO-MINOPHAGEN C [Concomitant]
     Dosage: 6 DF, QD
     Route: 042
     Dates: start: 20110112, end: 20110112
  62. VOLTAREN [Concomitant]
     Indication: ANALGESIC THERAPY
     Dosage: DAILY DOSE 50 MG
     Route: 054
     Dates: start: 20101203, end: 20110116
  63. ALBUMIN HUMAN [ALBUMEN] [Concomitant]
     Dosage: 100 ML, UNK
     Route: 042
     Dates: start: 20101101, end: 20101103
  64. RACOL [Concomitant]
     Indication: NUTRITIONAL SUPPORT
     Dosage: DAILY DOSE 1200 ML
     Dates: start: 20101126, end: 20110206

REACTIONS (6)
  - GENERAL PHYSICAL HEALTH DETERIORATION [None]
  - DEHYDRATION [None]
  - GASTRIC ULCER [None]
  - DEPRESSION [None]
  - STOMATITIS [None]
  - PALMAR-PLANTAR ERYTHRODYSAESTHESIA SYNDROME [None]
